FAERS Safety Report 9156865 (Version 1)
Quarter: 2013Q1

REPORT INFORMATION
  Report Type: Spontaneous
  Country: US (occurrence: None)
  Receive Date: 20130308
  Receipt Date: 20130308
  Transmission Date: 20140127
  Serious: Yes (Other)
  Sender: FDA-Public Use
  Company Number: None

PATIENT
  Age: 61 Year
  Sex: Female
  Weight: 70.76 kg

DRUGS (4)
  1. CYMBALTA [Suspect]
     Indication: NEURALGIA
     Dosage: 30 MG  ONCE  PO
     Route: 048
     Dates: start: 20121204, end: 20130305
  2. TRAMADOL [Concomitant]
  3. PROZAC [Concomitant]
  4. GABAPENTIN [Concomitant]

REACTIONS (13)
  - Heart rate increased [None]
  - Chest pain [None]
  - Arthralgia [None]
  - Mydriasis [None]
  - Irritability [None]
  - Dizziness [None]
  - Amnesia [None]
  - Epistaxis [None]
  - Insomnia [None]
  - Drug withdrawal headache [None]
  - Anxiety [None]
  - Depression [None]
  - Drug withdrawal syndrome [None]
